FAERS Safety Report 19467365 (Version 1)
Quarter: 2021Q2

REPORT INFORMATION
  Report Type: Spontaneous
  Country: US (occurrence: US)
  Receive Date: 20210626
  Receipt Date: 20210626
  Transmission Date: 20210717
  Serious: Yes (Other)
  Sender: FDA-Public Use
  Company Number: None

PATIENT
  Age: 10 Year
  Sex: Female
  Weight: 24.75 kg

DRUGS (4)
  1. MONTELUKAST [Suspect]
     Active Substance: MONTELUKAST SODIUM
     Indication: ASTHMA
     Route: 048
  2. MONTELUKAST [Suspect]
     Active Substance: MONTELUKAST SODIUM
     Indication: SEASONAL ALLERGY
     Route: 048
  3. PROBIOTICS [Concomitant]
     Active Substance: PROBIOTICS NOS
  4. VITAMIN D [Concomitant]
     Active Substance: VITAMIN D NOS

REACTIONS (9)
  - Neuropsychiatric symptoms [None]
  - Anxiety [None]
  - Anger [None]
  - Withdrawal syndrome [None]
  - Irritability [None]
  - Disturbance in attention [None]
  - Headache [None]
  - Nightmare [None]
  - Nausea [None]
